FAERS Safety Report 23403521 (Version 5)
Quarter: 2025Q4

REPORT INFORMATION
  Report Type: Spontaneous
  Country: US (occurrence: US)
  Receive Date: 20240116
  Receipt Date: 20251223
  Transmission Date: 20260118
  Serious: Yes (Other)
  Sender: SANOFI AVENTIS
  Company Number: US-SA-SAC20240112000085

PATIENT
  Age: 78 Year
  Sex: Female

DRUGS (13)
  1. DUPIXENT [Suspect]
     Active Substance: DUPILUMAB
     Indication: Asthma
     Dosage: 300 MG, QOW
     Route: 058
     Dates: start: 20221028
  2. HYDROCODONE [Concomitant]
     Active Substance: HYDROCODONE
  3. ADDERALL [Concomitant]
     Active Substance: AMPHETAMINE ASPARTATE\AMPHETAMINE SULFATE\DEXTROAMPHETAMINE SACCHARATE\DEXTROAMPHETAMINE SULFATE
  4. LOSARTAN [Concomitant]
     Active Substance: LOSARTAN
  5. KLONOPIN [Concomitant]
     Active Substance: CLONAZEPAM
  6. SIMVASTATIN [Concomitant]
     Active Substance: SIMVASTATIN
  7. GABAPENTIN [Concomitant]
     Active Substance: GABAPENTIN
  8. CITALOPRAM [Concomitant]
     Active Substance: CITALOPRAM
  9. LURASIDONE [Concomitant]
     Active Substance: LURASIDONE
  10. ABILIFY [Concomitant]
     Active Substance: ARIPIPRAZOLE
  11. LATUDA [Concomitant]
     Active Substance: LURASIDONE HYDROCHLORIDE
  12. OXYCODONE [Concomitant]
     Active Substance: OXYCODONE
  13. HYDROCODONE BITARTRATE [Concomitant]
     Active Substance: HYDROCODONE BITARTRATE

REACTIONS (4)
  - Pelvic fracture [Unknown]
  - Pain [Unknown]
  - Nasopharyngitis [Unknown]
  - Product use in unapproved indication [Unknown]

NARRATIVE: CASE EVENT DATE: 20221028
